FAERS Safety Report 5894690-4 (Version None)
Quarter: 2008Q3

REPORT INFORMATION
  Report Type: 
  Country: None (occurrence: None)
  Receive Date: 20080922
  Receipt Date: 20080107
  Transmission Date: 20090109
  Serious: Yes (Hospitalization)
  Sender: FDA-Public Use
  Company Number: 2008-00019FE

PATIENT
  Age: 6 Year
  Sex: Male

DRUGS (1)
  1. MINIRIN [Suspect]
     Indication: ENURESIS
     Dosage: SL
     Route: 060
     Dates: start: 20070501, end: 20070511

REACTIONS (3)
  - HAEMATURIA [None]
  - POST STREPTOCOCCAL GLOMERULONEPHRITIS [None]
  - PYREXIA [None]
